FAERS Safety Report 6333081-9 (Version None)
Quarter: 2009Q3

REPORT INFORMATION
  Report Type: 
  Country: None (occurrence: None)
  Receive Date: 20090828
  Receipt Date: 20090818
  Transmission Date: 20100115
  Serious: Yes (Other)
  Sender: FDA-Public Use
  Company Number: TW-PFIZER INC-2009258917

PATIENT
  Age: 32 Year

DRUGS (3)
  1. CHAMPIX [Suspect]
     Indication: SMOKING CESSATION THERAPY
     Route: 048
     Dates: start: 20080427, end: 20080430
  2. FENOGAL [Concomitant]
  3. STILNOX [Concomitant]

REACTIONS (1)
  - BIPOLAR DISORDER [None]
